FAERS Safety Report 23994793 (Version 1)
Quarter: 2024Q2

REPORT INFORMATION
  Report Type: Spontaneous
  Country: SE (occurrence: SE)
  Receive Date: 20240620
  Receipt Date: 20240620
  Transmission Date: 20240715
  Serious: Yes (Hospitalization)
  Sender: FDA-Public Use
  Company Number: None

PATIENT
  Age: 12 Year
  Sex: Female

DRUGS (3)
  1. VINCRISTINE SULFATE [Suspect]
     Active Substance: VINCRISTINE SULFATE
     Indication: Embryonal rhabdomyosarcoma
     Dosage: TREATMENT 1
     Route: 042
     Dates: start: 202405
  2. DACTINOMYCIN [Concomitant]
     Active Substance: DACTINOMYCIN
     Dosage: UNK
     Dates: start: 202405
  3. IFOSFAMIDE [Concomitant]
     Active Substance: IFOSFAMIDE
     Dosage: UNK
     Dates: start: 202405

REACTIONS (6)
  - Hypophagia [Not Recovered/Not Resolved]
  - Nausea [Recovering/Resolving]
  - Pain in jaw [Not Recovered/Not Resolved]
  - Pain [Recovering/Resolving]
  - Medical device site pain [Not Recovered/Not Resolved]
  - Off label use [Unknown]

NARRATIVE: CASE EVENT DATE: 20240501
